FAERS Safety Report 7613003-0 (Version None)
Quarter: 2011Q3

REPORT INFORMATION
  Report Type: 
  Country: None (occurrence: None)
  Receive Date: 20110713
  Receipt Date: 20110613
  Transmission Date: 20111222
  Serious: No
  Sender: FDA-Public Use
  Company Number: US-005550

PATIENT
  Age: 67 Year
  Sex: Male
  Weight: 81.6475 kg

DRUGS (4)
  1. DEGARELIX (240 MG, 240 MG 80 MG, 80 MG) [Suspect]
     Dosage: SEE IMAGE
     Route: 058
     Dates: start: 20100101, end: 20110307
  2. DEGARELIX (240 MG, 240 MG 80 MG, 80 MG) [Suspect]
     Dosage: SEE IMAGE
     Route: 058
     Dates: end: 20110307
  3. DEGARELIX (240 MG, 240 MG 80 MG, 80 MG) [Suspect]
     Dosage: SEE IMAGE
     Route: 058
     Dates: start: 20110607, end: 20110607
  4. DEGARELIX (240 MG, 240 MG 80 MG, 80 MG) [Suspect]
     Dosage: SEE IMAGE
     Route: 058
     Dates: start: 20091201, end: 20091201

REACTIONS (5)
  - NAUSEA [None]
  - CHILLS [None]
  - HEADACHE [None]
  - VOMITING [None]
  - PROSTATIC SPECIFIC ANTIGEN INCREASED [None]
